FAERS Safety Report 9435718 (Version 1)
Quarter: 2013Q3

REPORT INFORMATION
  Report Type: Spontaneous
  Country: US (occurrence: US)
  Receive Date: 20130730
  Receipt Date: 20130730
  Transmission Date: 20140515
  Serious: Yes (Hospitalization, Other)
  Sender: FDA-Public Use
  Company Number: US-ZYDUS-001845

PATIENT
  Age: 75 Year
  Sex: Male

DRUGS (1)
  1. WARFARIN (WARFARIN) [Suspect]
     Indication: ATRIAL FIBRILLATION

REACTIONS (1)
  - Compartment syndrome [None]
